FAERS Safety Report 16884890 (Version 1)
Quarter: 2019Q4

REPORT INFORMATION
  Report Type: Spontaneous
  Country: US (occurrence: US)
  Receive Date: 20191003
  Receipt Date: 20191003
  Transmission Date: 20200122
  Serious: Yes (Life-Threatening, Hospitalization, Disabling)
  Sender: FDA-Public Use
  Company Number: None

PATIENT
  Age: 56 Year
  Sex: Female
  Weight: 90 kg

DRUGS (1)
  1. GADOLINIUM-BASED CONTRAST AGENT [Suspect]
     Active Substance: GADOLINIUM
     Indication: DIZZINESS
     Dosage: ?          QUANTITY:1 INJECTION(S);?
     Route: 042
     Dates: start: 20170107, end: 20190107

REACTIONS (11)
  - Lung disorder [None]
  - Gait inability [None]
  - Clubbing [None]
  - Nephrogenic systemic fibrosis [None]
  - Loss of personal independence in daily activities [None]
  - Hepatic lesion [None]
  - Drug level abnormal [None]
  - Scan with contrast [None]
  - Haemoglobin distribution width decreased [None]
  - Skin hypertrophy [None]
  - Dysstasia [None]

NARRATIVE: CASE EVENT DATE: 20170127
